FAERS Safety Report 7603014-3 (Version None)
Quarter: 2011Q3

REPORT INFORMATION
  Report Type: 
  Country: None (occurrence: None)
  Receive Date: 20110712
  Receipt Date: 20110606
  Transmission Date: 20111222
  Serious: Yes (Death)
  Sender: FDA-Public Use
  Company Number: US-SANOFI-AVENTIS-2011SA036253

PATIENT
  Sex: Female

DRUGS (7)
  1. AMBIEN [Suspect]
     Indication: OVERDOSE
     Route: 065
     Dates: start: 20091105, end: 20110521
  2. DEPAKOTE ER [Suspect]
     Indication: OVERDOSE
     Route: 065
     Dates: start: 20081202, end: 20110522
  3. LAMOTRIGINE [Concomitant]
     Route: 065
     Dates: start: 20081202, end: 20110521
  4. CARISOPRODOL [Suspect]
     Indication: OVERDOSE
     Route: 065
     Dates: start: 20090817, end: 20110521
  5. ESCITALOPRAM OXALATE [Concomitant]
     Route: 065
     Dates: start: 20091020, end: 20110521
  6. DEPAKOTE ER [Suspect]
     Indication: BIPOLAR DISORDER
     Route: 065
     Dates: start: 20081202, end: 20110522
  7. TYLENOL-500 [Suspect]
     Indication: OVERDOSE
     Route: 065

REACTIONS (1)
  - OVERDOSE [None]
